FAERS Safety Report 5698387-5 (Version None)
Quarter: 2008Q2

REPORT INFORMATION
  Report Type: 
  Country: None (occurrence: None)
  Receive Date: 20080408
  Receipt Date: 20080402
  Transmission Date: 20081010
  Serious: Yes (Other)
  Sender: FDA-Public Use
  Company Number: UG-GILEAD-2007-0014368

PATIENT
  Sex: Female
  Weight: 92.5 kg

DRUGS (7)
  1. TENOFOVIR DISOPROXIL FUMARATE [Suspect]
     Indication: HIV INFECTION
     Dates: start: 20071010
  2. TENOFOVIR DISOPROXIL FUMARATE [Suspect]
     Dates: start: 20031112, end: 20070912
  3. LAMIVUDINE [Concomitant]
     Indication: HIV INFECTION
     Dates: start: 20071010
  4. LAMIVUDINE [Concomitant]
     Dates: start: 20031112, end: 20070912
  5. ZIDOVUDINE [Concomitant]
     Indication: HIV INFECTION
     Dates: start: 20071010
  6. ZIDOVUDINE [Concomitant]
     Dates: start: 20031112, end: 20070912
  7. CAPTOPRIL [Concomitant]
     Indication: SYSTOLIC HYPERTENSION
     Dates: start: 20050914

REACTIONS (1)
  - BONE PAIN [None]
